FAERS Safety Report 18594866 (Version 1)
Quarter: 2020Q4

REPORT INFORMATION
  Report Type: Spontaneous
  Country: US (occurrence: US)
  Receive Date: 20201209
  Receipt Date: 20201209
  Transmission Date: 20210114
  Serious: Yes (Other)
  Sender: FDA-Public Use
  Company Number: US-TAKEDA-2020TUS054705

PATIENT
  Sex: Female

DRUGS (6)
  1. FORTEO [Concomitant]
     Active Substance: TERIPARATIDE
     Dosage: UNKNOWN
     Route: 065
  2. CALCITRIOL. [Concomitant]
     Active Substance: CALCITRIOL
     Dosage: 0.25 MICROGRAM, TID (5 TABLETS)
     Route: 065
  3. NATPARA (PARATHYROID HORMONE) [Suspect]
     Active Substance: PARATHYROID HORMONE
     Indication: HYPOPARATHYROIDISM
     Dosage: UNKNOWN
     Route: 065
  4. PHOSLO [Concomitant]
     Active Substance: CALCIUM ACETATE
     Dosage: 2 GRAM, TID
     Route: 065
  5. NATPARA (PARATHYROID HORMONE) [Suspect]
     Active Substance: PARATHYROID HORMONE
     Indication: HYPOPARATHYROIDISM
     Dosage: UNKNOWN
     Route: 065
  6. NATPARA (PARATHYROID HORMONE) [Suspect]
     Active Substance: PARATHYROID HORMONE
     Indication: HYPOPARATHYROIDISM
     Dosage: UNKNOWN
     Route: 065

REACTIONS (3)
  - DiGeorge^s syndrome [Unknown]
  - Recalled product [Unknown]
  - Off label use [Unknown]
